FAERS Safety Report 21095764 (Version 1)
Quarter: 2022Q3

REPORT INFORMATION
  Report Type: Spontaneous
  Country: DE (occurrence: DE)
  Receive Date: 20220718
  Receipt Date: 20220718
  Transmission Date: 20221027
  Serious: Yes (Other)
  Sender: FDA-Public Use
  Company Number: DE-EMBRYOTOX-202113647

PATIENT
  Sex: Female
  Weight: 3.865 kg

DRUGS (1)
  1. SULFASALAZINE [Suspect]
     Active Substance: SULFASALAZINE
     Indication: Rheumatoid arthritis
     Dosage: 2000 [MG/D ] 2 SEPARATED DOSES
     Route: 064
     Dates: start: 20190616, end: 20200311

REACTIONS (2)
  - Enamel anomaly [Not Recovered/Not Resolved]
  - Foetal exposure during pregnancy [Unknown]
